FAERS Safety Report 8714141 (Version 3)
Quarter: 2012Q4

REPORT INFORMATION
  Report Type: 
  Country: JP (occurrence: JP)
  Receive Date: 20120808
  Receipt Date: 20120831
  Transmission Date: 20130627
  Serious: Yes (Hospitalization)
  Sender: FDA-Public Use
  Company Number: JP-ALLERGAN-1210840US

PATIENT
  Age: 33 Year
  Sex: Female

DRUGS (2)
  1. BOTOX [Suspect]
     Indication: MUSCLE SPASMS
     Dosage: 50 UNITS, single
     Route: 030
     Dates: start: 20120718, end: 20120718
  2. DEPAKENE [Concomitant]
     Indication: CONVULSION PROPHYLAXIS
     Dosage: 200 mg, tid
     Route: 048
     Dates: start: 20120718

REACTIONS (5)
  - Heterophoria [Unknown]
  - Nystagmus [Unknown]
  - Convulsion [Recovered/Resolved]
  - Dysphagia [Recovered/Resolved]
  - Vomiting [Recovered/Resolved]
